FAERS Safety Report 8772438 (Version 1)
Quarter: 2012Q4

REPORT INFORMATION
  Report Type: 
  Country: AU (occurrence: AU)
  Receive Date: 20120905
  Receipt Date: 20120905
  Transmission Date: 20130627
  Serious: Yes (Other)
  Sender: FDA-Public Use
  Company Number: AU-JNJFOC-20120814756

PATIENT
  Age: 87 Year
  Sex: Female

DRUGS (2)
  1. CODRAL RELIEF COLD AND FLU DECONGESTANT HOT DRINK [Suspect]
     Indication: INFLUENZA
     Route: 048
     Dates: start: 20120827, end: 20120827
  2. UNKNOWN MEDICATION [Concomitant]
     Route: 065

REACTIONS (3)
  - Asthma [Not Recovered/Not Resolved]
  - Rash macular [Not Recovered/Not Resolved]
  - Swelling face [Not Recovered/Not Resolved]
